FAERS Safety Report 6928811-9 (Version None)
Quarter: 2010Q3

REPORT INFORMATION
  Report Type: 
  Country: None (occurrence: None)
  Receive Date: 20100806
  Receipt Date: 20090701
  Transmission Date: 20110219
  Serious: No
  Sender: FDA-Public Use
  Company Number: 2009-00367

PATIENT
  Age: 56 Year
  Sex: Female

DRUGS (4)
  1. ZICAM COLD REMEDY GEL SWABS [Suspect]
     Dosage: AS DIRECTED - OFF + ON
     Dates: start: 20050101, end: 20060101
  2. LIPITOR [Concomitant]
  3. AMLODIPINE BESYLATE [Concomitant]
  4. ONE-A-DAY MULTIVITAMIN [Concomitant]

REACTIONS (1)
  - ANOSMIA [None]
